FAERS Safety Report 4291401-3 (Version None)
Quarter: 2004Q1

REPORT INFORMATION
  Report Type: 
  Country: None (occurrence: None)
  Receive Date: 20040211
  Receipt Date: 20030519
  Transmission Date: 20041129
  Serious: No
  Sender: FDA-Public Use
  Company Number: US-BRISTOL-MYERS SQUIBB COMPANY-12280863

PATIENT

DRUGS (1)
  1. CEFZIL [Suspect]

REACTIONS (1)
  - SWELLING FACE [None]
